FAERS Safety Report 20044571 (Version 2)
Quarter: 2021Q4

REPORT INFORMATION
  Report Type: Spontaneous
  Country: US (occurrence: US)
  Receive Date: 20211108
  Receipt Date: 20211123
  Transmission Date: 20220303
  Serious: Yes (Other)
  Sender: FDA-Public Use
  Company Number: US-BEH-2021137497

PATIENT
  Age: 41 Year
  Sex: Female

DRUGS (7)
  1. HIZENTRA [Suspect]
     Active Substance: HUMAN IMMUNOGLOBULIN G
     Indication: Immunodeficiency common variable
     Dosage: 14 GRAM(70ML), QW
     Route: 058
     Dates: start: 20200124
  2. HIZENTRA [Suspect]
     Active Substance: HUMAN IMMUNOGLOBULIN G
     Dosage: 14 GRAM, TOT
     Route: 058
     Dates: start: 20211021, end: 20211021
  3. HIZENTRA [Suspect]
     Active Substance: HUMAN IMMUNOGLOBULIN G
     Dosage: 14 GRAM, TOT
     Route: 058
     Dates: start: 20211028, end: 20211028
  4. HIZENTRA [Suspect]
     Active Substance: HUMAN IMMUNOGLOBULIN G
     Dosage: 14 GRAM, TOT
     Route: 058
     Dates: start: 20211104, end: 20211104
  5. PRIVIGEN [Suspect]
     Active Substance: HUMAN IMMUNOGLOBULIN G
     Dosage: UNK
     Route: 065
  6. LAMOTRIGINE [Concomitant]
     Active Substance: LAMOTRIGINE
  7. LEVOTHYROXINE [Concomitant]
     Active Substance: LEVOTHYROXINE

REACTIONS (37)
  - Meningitis aseptic [Unknown]
  - Infusion site swelling [Recovered/Resolved]
  - Nausea [Recovered/Resolved]
  - Pain in extremity [Recovered/Resolved]
  - Erythema [Recovered/Resolved]
  - Body temperature increased [Recovered/Resolved]
  - Headache [Recovered/Resolved]
  - Vomiting [Recovered/Resolved]
  - Hypersensitivity [Recovered/Resolved]
  - Infusion site swelling [Recovered/Resolved]
  - Recalled product administered [Recovered/Resolved]
  - Erythema [Recovered/Resolved]
  - Recalled product administered [Recovered/Resolved]
  - Body temperature increased [Recovered/Resolved]
  - Recalled product administered [Recovered/Resolved]
  - Headache [Recovered/Resolved]
  - Recalled product administered [Recovered/Resolved]
  - Nausea [Recovered/Resolved]
  - Recalled product administered [Recovered/Resolved]
  - Vomiting [Recovered/Resolved]
  - Recalled product administered [Recovered/Resolved]
  - Hypersensitivity [Recovered/Resolved]
  - Recalled product administered [Recovered/Resolved]
  - Infusion site swelling [Recovered/Resolved]
  - Recalled product administered [Recovered/Resolved]
  - Erythema [Recovered/Resolved]
  - Recalled product administered [Recovered/Resolved]
  - Body temperature increased [Recovered/Resolved]
  - Recalled product administered [Recovered/Resolved]
  - Headache [Recovered/Resolved]
  - Recalled product administered [Recovered/Resolved]
  - Nausea [Recovered/Resolved]
  - Recalled product administered [Recovered/Resolved]
  - Vomiting [Recovered/Resolved]
  - Recalled product administered [Recovered/Resolved]
  - Hypersensitivity [Recovered/Resolved]
  - Recalled product administered [Recovered/Resolved]

NARRATIVE: CASE EVENT DATE: 20211021
